FAERS Safety Report 18798332 (Version 1)
Quarter: 2021Q1

REPORT INFORMATION
  Report Type: Spontaneous
  Country: US (occurrence: US)
  Receive Date: 20210128
  Receipt Date: 20210128
  Transmission Date: 20210419
  Serious: Yes (Hospitalization)
  Sender: FDA-Public Use
  Company Number: US-EMCURE PHARMACEUTICALS LTD-2021-EPL-000237

PATIENT
  Age: 16 Year
  Sex: Female

DRUGS (1)
  1. BUSPIRONE [Suspect]
     Active Substance: BUSPIRONE HYDROCHLORIDE
     Dosage: 450 MILLIGRAM (7.6 MG/KG)

REACTIONS (8)
  - Blood lactic acid increased [Recovered/Resolved]
  - Blood bicarbonate decreased [Recovered/Resolved]
  - Intentional overdose [Unknown]
  - Intentional self-injury [Unknown]
  - Nausea [Recovered/Resolved]
  - Dizziness [Recovered/Resolved]
  - Somnolence [Recovered/Resolved]
  - Anion gap increased [Recovered/Resolved]
